FAERS Safety Report 4966040-9 (Version None)
Quarter: 2006Q2

REPORT INFORMATION
  Report Type: 
  Country: None (occurrence: None)
  Receive Date: 20060407
  Receipt Date: 20060406
  Transmission Date: 20061013
  Serious: Yes (Hospitalization)
  Sender: FDA-Public Use
  Company Number: FR-GLAXOSMITHKLINE-B0419288A

PATIENT
  Age: 73 Year
  Sex: Female
  Weight: 54 kg

DRUGS (12)
  1. CLAMOXYL [Suspect]
     Dosage: 1G TWICE PER DAY
     Route: 048
     Dates: start: 20060126, end: 20060131
  2. NEXIUM [Suspect]
     Dosage: 20MG PER DAY
     Route: 048
     Dates: start: 20060127, end: 20060207
  3. COVERSYL [Suspect]
     Dosage: 4MG PER DAY
     Route: 048
     Dates: start: 20051213, end: 20060205
  4. ESCITALOPRAM OXALATE [Suspect]
     Dosage: 10MG TWICE PER DAY
     Route: 048
     Dates: start: 20051219, end: 20060131
  5. VASTAREL [Concomitant]
     Dosage: 35MG TWICE PER DAY
     Route: 048
     Dates: start: 20051213, end: 20060207
  6. KREDEX [Concomitant]
     Dosage: 25MG PER DAY
     Route: 048
     Dates: start: 20051213
  7. KARDEGIC [Concomitant]
     Dosage: 75MG PER DAY
     Route: 048
     Dates: start: 20051213
  8. RISPERDAL [Concomitant]
     Dosage: 1.5MG PER DAY
     Route: 065
  9. STILNOX [Concomitant]
     Dosage: 1TAB PER DAY
     Route: 048
     Dates: start: 20060103
  10. PEVARYL [Concomitant]
     Route: 050
     Dates: start: 20060109, end: 20060129
  11. ELISOR [Concomitant]
     Dosage: 20MG PER DAY
     Route: 048
     Dates: start: 20051213
  12. MOPRAL [Concomitant]
     Dosage: 20MG PER DAY
     Route: 048
     Dates: end: 20060127

REACTIONS (5)
  - DEHYDRATION [None]
  - DIARRHOEA [None]
  - HYPONATRAEMIA [None]
  - ORTHOSTATIC HYPOTENSION [None]
  - VOMITING [None]
